FAERS Safety Report 8425804-X (Version None)
Quarter: 2012Q2

REPORT INFORMATION
  Report Type: 
  Country: None (occurrence: None)
  Receive Date: 20120606
  Receipt Date: 20120606
  Transmission Date: 20120825
  Serious: Yes (Disabling)
  Sender: FDA-Public Use
  Company Number: None

PATIENT
  Age: 75 Year
  Sex: Female

DRUGS (1)
  1. CALCITONIN SALMON [Suspect]
     Dosage: USE ONE SPRAY IN NOSTRIL DAILY, ALTERNATE NOSTRILS AS DIRECTED
     Route: 045
     Dates: start: 20101222

REACTIONS (2)
  - LOWER LIMB FRACTURE [None]
  - HIP FRACTURE [None]
